FAERS Safety Report 4424657-4 (Version None)
Quarter: 2004Q3

REPORT INFORMATION
  Report Type: 
  Country: None (occurrence: None)
  Receive Date: 20040805
  Receipt Date: 20040722
  Transmission Date: 20050211
  Serious: Yes (Other)
  Sender: FDA-Public Use
  Company Number: 2004-BP-06014BP

PATIENT
  Age: 74 Year
  Sex: Female

DRUGS (15)
  1. MICARDIS [Suspect]
     Indication: CEREBROVASCULAR ACCIDENT PROPHYLAXIS
     Dosage: PO
     Route: 048
     Dates: start: 20020410
  2. MICARDIS [Suspect]
     Indication: PROPHYLAXIS
     Dosage: PO
     Route: 048
     Dates: start: 20020410
  3. RAMIPRIL [Suspect]
     Indication: CEREBROVASCULAR ACCIDENT PROPHYLAXIS
     Dosage: PO
     Route: 048
     Dates: start: 20020410
  4. RAMIPRIL [Suspect]
     Indication: PROPHYLAXIS
     Dosage: PO
     Route: 048
     Dates: start: 20020410
  5. ACEBUTOLOL [Concomitant]
  6. SYNTHROID [Concomitant]
  7. DETROL (TOLTERODINE L-TARTRATE) (NR) [Concomitant]
  8. IMIPRAM TAB [Concomitant]
  9. SIMVASTATIN [Concomitant]
  10. TYLENOL (PARACETAMNOL) [Concomitant]
  11. ACETYLSALICYLIC ACID SRT [Concomitant]
  12. VITAMIN D [Concomitant]
  13. CALCIUM [Concomitant]
  14. VITAMIN E [Concomitant]
  15. VITAMIN B12 [Concomitant]

REACTIONS (3)
  - ANAEMIA [None]
  - BLOOD POTASSIUM INCREASED [None]
  - RENAL FAILURE [None]
